FAERS Safety Report 8838913 (Version 1)
Quarter: 2012Q4

REPORT INFORMATION
  Report Type: Spontaneous
  Country: US (occurrence: None)
  Receive Date: 20121011
  Receipt Date: 20121011
  Transmission Date: 20130627
  Serious: Yes (Hospitalization)
  Sender: FDA-Public Use
  Company Number: None

PATIENT
  Age: 53 Year
  Sex: Female
  Weight: 53.98 kg

DRUGS (17)
  1. GEMCITABINE [Suspect]
     Indication: CHOLANGIOCARCINOMA
     Dosage: 800 mg/m2 IV q 2 weeks
     Route: 042
     Dates: start: 20120820
  2. OXALIPLATIN [Suspect]
     Indication: CHOLANGIOCARCINOMA
     Dosage: 85 mg/m2 IV q 2 weeks
     Route: 042
     Dates: start: 20120821
  3. ERLOTINIB [Suspect]
     Indication: CHOLANGIOCARCINOMA
     Dosage: 150 mg po on Days 3-8 and Days 17-22
     Route: 048
     Dates: start: 20120820, end: 20120825
  4. OXYCODONE (ROXICODONE) [Concomitant]
  5. ONDANSETRON (ZOFRAN ODT) [Concomitant]
  6. PROMETHAZINE [Concomitant]
  7. OXYCODONE ER (OXYCONTIN) [Concomitant]
  8. DOCUSATE SODIUM [Concomitant]
  9. SENNA [Concomitant]
  10. LIDOCAINE-PRILOCAINE [Concomitant]
  11. MILK THISTLE [Concomitant]
  12. LORAZEPAM (ATIVAN) [Concomitant]
  13. DEXAMETHASONE [Concomitant]
  14. PROMETHAZINE [Concomitant]
  15. PROCHLORPERAZINE: COMPAZINE [Concomitant]
  16. CLINDAMYCIN [Concomitant]
  17. DESIPRAMINE [Concomitant]

REACTIONS (2)
  - Nausea [None]
  - Diarrhoea [None]
